FAERS Safety Report 9523476 (Version 1)
Quarter: 2013Q3

REPORT INFORMATION
  Report Type: Spontaneous
  Country: JP (occurrence: JP)
  Receive Date: 20130913
  Receipt Date: 20130913
  Transmission Date: 20140515
  Serious: Yes (Death, Hospitalization)
  Sender: FDA-Public Use
  Company Number: PHHY2013JP100480

PATIENT
  Age: 80 Year
  Sex: Male

DRUGS (7)
  1. 5-FLUOROURACIL [Suspect]
     Dosage: 320 MG/M2, UNK
     Route: 040
     Dates: start: 200811
  2. 5-FLUOROURACIL [Suspect]
     Dosage: 1920 MG/M2, UNK
  3. 5-FLUOROURACIL [Suspect]
     Dates: start: 200902
  4. FOLINIC ACID [Concomitant]
  5. IRINOTECAN [Concomitant]
  6. BEVACIZUMAB [Concomitant]
  7. CETUXIMAB [Concomitant]

REACTIONS (3)
  - Death [Fatal]
  - Hyperammonaemic encephalopathy [Unknown]
  - Hyperammonaemia [Unknown]
